FAERS Safety Report 5304607-9 (Version None)
Quarter: 2007Q2

REPORT INFORMATION
  Report Type: 
  Country: None (occurrence: None)
  Receive Date: 20070423
  Receipt Date: 20070416
  Transmission Date: 20071010
  Serious: Yes (Disabling)
  Sender: FDA-Public Use
  Company Number: JP-JPN-A200701145

PATIENT
  Age: 67 Year
  Sex: Female
  Weight: 42 kg

DRUGS (7)
  1. VALTREX [Suspect]
     Indication: HERPES ZOSTER
     Dosage: 1000MG PER DAY
     Route: 048
     Dates: start: 20070312, end: 20070314
  2. VENCOLL [Concomitant]
     Indication: CONSTIPATION
     Route: 048
     Dates: start: 20030101
  3. UNKNOWN NAME [Concomitant]
     Route: 048
     Dates: start: 20020101
  4. EVISTA [Concomitant]
     Indication: OSTEOPOROSIS
     Route: 048
     Dates: start: 20060401
  5. RENAGEL [Concomitant]
     Route: 048
     Dates: start: 20040101
  6. CALTAN [Concomitant]
     Route: 048
     Dates: start: 20020101
  7. AMOBAN [Concomitant]
     Indication: INSOMNIA
     Route: 048
     Dates: start: 20070123

REACTIONS (4)
  - ANOREXIA [None]
  - DECREASED APPETITE [None]
  - HALLUCINATION [None]
  - MALAISE [None]
